FAERS Safety Report 23111176 (Version 1)
Quarter: 2023Q4

REPORT INFORMATION
  Report Type: Spontaneous
  Country: US (occurrence: US)
  Receive Date: 20231026
  Receipt Date: 20231026
  Transmission Date: 20240109
  Serious: Yes (Other)
  Sender: FDA-Public Use
  Company Number: US-JAZZ-2021-US-010490

PATIENT
  Age: 22 Month
  Sex: Female

DRUGS (1)
  1. DEFITELIO [Suspect]
     Active Substance: DEFIBROTIDE SODIUM
     Indication: Venoocclusive disease
     Dosage: UNKNOWN DOSE FOR 21 DAYS

REACTIONS (3)
  - Melaena [Recovering/Resolving]
  - Stomatitis haemorrhagic [Recovering/Resolving]
  - Varices oesophageal [Recovering/Resolving]
